FAERS Safety Report 20958041 (Version 1)
Quarter: 2022Q2

REPORT INFORMATION
  Report Type: Spontaneous
  Country: US (occurrence: None)
  Receive Date: 20220614
  Receipt Date: 20220614
  Transmission Date: 20220720
  Serious: Yes (Other)
  Sender: FDA-Public Use
  Company Number: None

PATIENT
  Sex: 0

DRUGS (1)
  1. LEVALBUTEROL TARTRATE [Suspect]
     Active Substance: LEVALBUTEROL TARTRATE

REACTIONS (1)
  - Tachycardia [None]
